FAERS Safety Report 18551438 (Version 2)
Quarter: 2020Q4

REPORT INFORMATION
  Report Type: Spontaneous
  Country: US (occurrence: US)
  Receive Date: 20201126
  Receipt Date: 20201223
  Transmission Date: 20210114
  Serious: Yes (Hospitalization, Other)
  Sender: FDA-Public Use
  Company Number: US-TAKEDA-2020TUS052465

PATIENT
  Age: 64 Year
  Sex: Female
  Weight: 47.62 kg

DRUGS (17)
  1. GAMMAGARD LIQUID [Suspect]
     Active Substance: HUMAN IMMUNOGLOBULIN G
     Indication: IMMUNODEFICIENCY COMMON VARIABLE
     Dosage: 400 MILLIGRAM/KILOGRAM, Q3WEEKS
     Route: 042
     Dates: start: 20150602
  2. GAMMAGARD LIQUID [Suspect]
     Active Substance: HUMAN IMMUNOGLOBULIN G
     Indication: SELECTIVE IGG SUBCLASS DEFICIENCY
     Dosage: 20 GRAM, Q3WEEKS
     Dates: start: 20150602
  3. XANAX [Concomitant]
     Active Substance: ALPRAZOLAM
  4. SODIUM CHLORIDE. [Concomitant]
     Active Substance: SODIUM CHLORIDE
  5. ACETAMINOPHEN. [Concomitant]
     Active Substance: ACETAMINOPHEN
  6. METOPROLOL. [Concomitant]
     Active Substance: METOPROLOL
  7. KEPPRA [Concomitant]
     Active Substance: LEVETIRACETAM
  8. AMLODIPINE/ATORVASTATIN KRKA [Concomitant]
  9. LYRICA [Concomitant]
     Active Substance: PREGABALIN
  10. ROXICODONE [Concomitant]
     Active Substance: OXYCODONE HYDROCHLORIDE
  11. DIPHENHYDRAMINE. [Concomitant]
     Active Substance: DIPHENHYDRAMINE
  12. EPINEPHRINE. [Concomitant]
     Active Substance: EPINEPHRINE
  13. TELMISARTAN/AMLODIPINE [Concomitant]
     Active Substance: AMLODIPINE\TELMISARTAN
  14. GABAPENTIN. [Concomitant]
     Active Substance: GABAPENTIN
  15. METOCLOPRAMIDE. [Concomitant]
     Active Substance: METOCLOPRAMIDE
  16. FENTANYL. [Concomitant]
     Active Substance: FENTANYL
  17. FIORICET [Concomitant]
     Active Substance: ACETAMINOPHEN\BUTALBITAL\CAFFEINE

REACTIONS (2)
  - Fall [Unknown]
  - Hip fracture [Unknown]

NARRATIVE: CASE EVENT DATE: 20201105
